FAERS Safety Report 8604317-6 (Version None)
Quarter: 2012Q3

REPORT INFORMATION
  Report Type: 
  Country: None (occurrence: None)
  Receive Date: 20120808
  Receipt Date: 20120808
  Transmission Date: 20120928
  Serious: No
  Sender: FDA-Public Use
  Company Number: None

PATIENT
  Sex: Female

DRUGS (9)
  1. WELLBUTRIN XL [Concomitant]
  2. TOPIRAMATE [Concomitant]
  3. SEROQUEL [Suspect]
     Indication: MAJOR DEPRESSION
     Dosage: 100-300 MG DAILY PO
     Route: 048
     Dates: start: 20090123, end: 20120406
  4. MIRENA [Concomitant]
  5. MANY SUPPLEMENTS [Concomitant]
  6. NORTRIPTYLINE [Concomitant]
  7. PROTONIX [Concomitant]
  8. SUCRALFETE [Concomitant]
  9. TRAZODONE HYDROCHLORIDE [Concomitant]

REACTIONS (1)
  - NEUTROPENIA [None]
